FAERS Safety Report 17193578 (Version 1)
Quarter: 2019Q4

REPORT INFORMATION
  Report Type: Spontaneous
  Country: US (occurrence: US)
  Receive Date: 20191223
  Receipt Date: 20191223
  Transmission Date: 20200122
  Serious: Yes (Other)
  Sender: FDA-Public Use
  Company Number: US-ELI_LILLY_AND_COMPANY-US201912005081

PATIENT
  Age: 33 Year
  Sex: Female

DRUGS (5)
  1. ESCITALOPRAM [Concomitant]
     Active Substance: ESCITALOPRAM OXALATE
  2. TYSABRI [Concomitant]
     Active Substance: NATALIZUMAB
  3. NUEDEXTA [Suspect]
     Active Substance: DEXTROMETHORPHAN HYDROBROMIDE\QUINIDINE SULFATE
     Indication: AFFECT LABILITY
     Dosage: 20/10 MG, BID
     Route: 048
  4. ZYPREXA [Suspect]
     Active Substance: OLANZAPINE
     Indication: PRODUCT USED FOR UNKNOWN INDICATION
     Dosage: UNK, UNKNOWN
     Route: 065
  5. MEMANTINE. [Concomitant]
     Active Substance: MEMANTINE

REACTIONS (9)
  - Dizziness [Unknown]
  - Malaise [Not Recovered/Not Resolved]
  - Affect lability [Not Recovered/Not Resolved]
  - Affective disorder [Unknown]
  - Fatigue [Unknown]
  - Multiple sclerosis [Unknown]
  - Irritability [Unknown]
  - Micturition urgency [Unknown]
  - Cognitive disorder [Unknown]

NARRATIVE: CASE EVENT DATE: 2013
